FAERS Safety Report 21532872 (Version 8)
Quarter: 2025Q2

REPORT INFORMATION
  Report Type: Report from Study
  Country: US (occurrence: US)
  Receive Date: 20221101
  Receipt Date: 20250426
  Transmission Date: 20250716
  Serious: Yes (Other)
  Sender: ABBVIE
  Company Number: US-ABBVIE-22K-163-4410482-00

PATIENT
  Age: 79 Year
  Sex: Female

DRUGS (10)
  1. HUMIRA [Suspect]
     Active Substance: ADALIMUMAB
     Indication: Product used for unknown indication
     Route: 058
  2. RINVOQ [Suspect]
     Active Substance: UPADACITINIB
     Indication: Rheumatoid arthritis
     Route: 048
     Dates: start: 20210603
  3. RINVOQ [Suspect]
     Active Substance: UPADACITINIB
     Indication: Rheumatoid arthritis
     Route: 048
  4. RINVOQ [Suspect]
     Active Substance: UPADACITINIB
     Indication: Rheumatoid arthritis
     Route: 048
  5. RINVOQ [Suspect]
     Active Substance: UPADACITINIB
     Indication: Rheumatoid arthritis
     Route: 048
  6. OXYCONTIN [Concomitant]
     Active Substance: OXYCODONE HYDROCHLORIDE
     Indication: Product used for unknown indication
  7. MODERNA COVID-19 VACCINE [Concomitant]
     Active Substance: ELASOMERAN
     Indication: COVID-19 immunisation
     Route: 030
     Dates: start: 20210327, end: 20210327
  8. MODERNA COVID-19 VACCINE [Concomitant]
     Active Substance: ELASOMERAN
     Indication: COVID-19 immunisation
     Route: 030
     Dates: start: 20210424, end: 20210424
  9. MODERNA COVID-19 VACCINE [Concomitant]
     Active Substance: ELASOMERAN
     Indication: COVID-19 immunisation
     Route: 030
     Dates: start: 20211129, end: 20211129
  10. HYDROCODONE [Concomitant]
     Active Substance: HYDROCODONE
     Indication: Product used for unknown indication

REACTIONS (18)
  - Cataract nuclear [Unknown]
  - Cataract [Not Recovered/Not Resolved]
  - Nasopharyngitis [Recovering/Resolving]
  - Unevaluable event [Unknown]
  - Dry throat [Not Recovered/Not Resolved]
  - Inflammation [Unknown]
  - Arthralgia [Not Recovered/Not Resolved]
  - Balance disorder [Unknown]
  - Depression [Recovering/Resolving]
  - Gait disturbance [Unknown]
  - Back pain [Unknown]
  - Pain in extremity [Unknown]
  - Dyspnoea [Unknown]
  - Agitation [Unknown]
  - Upper respiratory tract congestion [Not Recovered/Not Resolved]
  - Fatigue [Unknown]
  - Rheumatoid arthritis [Unknown]
  - Ingrowing nail [Unknown]

NARRATIVE: CASE EVENT DATE: 20221001
